FAERS Safety Report 6034207-7 (Version None)
Quarter: 2009Q1

REPORT INFORMATION
  Report Type: 
  Country: None (occurrence: None)
  Receive Date: 20090108
  Receipt Date: 20081223
  Transmission Date: 20090719
  Serious: Yes (Death)
  Sender: FDA-Public Use
  Company Number: 8040854

PATIENT
  Age: 21 Year
  Sex: Female

DRUGS (3)
  1. KEPPRA [Suspect]
     Dates: end: 20070101
  2. COCAINE [Suspect]
  3. ZOLPIDEM [Suspect]
     Dates: end: 20070101

REACTIONS (2)
  - CARDIAC ARREST [None]
  - RESPIRATORY ARREST [None]
